FAERS Safety Report 8326283 (Version 4)
Quarter: 2013Q4

REPORT INFORMATION
  Report Type: Spontaneous
  Country: US (occurrence: US)
  Receive Date: 20120109
  Receipt Date: 20131025
  Transmission Date: 20140711
  Serious: No
  Sender: FDA-Public Use
  Company Number: US-BIOGENIDEC-2012BI000150

PATIENT
  Age: 31 Year
  Sex: Male

DRUGS (3)
  1. AVONEX [Suspect]
     Indication: MULTIPLE SCLEROSIS
     Route: 030
     Dates: start: 20111230
  2. AVONEX [Suspect]
     Indication: MULTIPLE SCLEROSIS
     Route: 030
     Dates: start: 20130301
  3. NYQUIL [Concomitant]
     Indication: PREMEDICATION

REACTIONS (13)
  - Visual impairment [Recovered/Resolved]
  - Metamorphopsia [Recovered/Resolved]
  - Vertigo [Recovered/Resolved]
  - Multiple sclerosis [Recovered/Resolved]
  - Lethargy [Recovered/Resolved]
  - Hypoaesthesia [Not Recovered/Not Resolved]
  - Drug dose omission [Recovered/Resolved]
  - Disorientation [Not Recovered/Not Resolved]
  - Dysphagia [Unknown]
  - Influenza like illness [Recovered/Resolved]
  - Terminal insomnia [Recovered/Resolved]
  - Feeling abnormal [Not Recovered/Not Resolved]
  - Heart rate increased [Recovered/Resolved]
